FAERS Safety Report 25682098 (Version 1)
Quarter: 2025Q3

REPORT INFORMATION
  Report Type: Spontaneous
  Country: US (occurrence: None)
  Receive Date: 20250813
  Receipt Date: 20250813
  Transmission Date: 20251020
  Serious: No
  Sender: FDA-CTU
  Company Number: None

PATIENT
  Sex: Male

DRUGS (2)
  1. BCG LIVE [Suspect]
     Active Substance: BCG LIVE
     Indication: Bladder cancer
  2. BCG LIVE [Suspect]
     Active Substance: BCG LIVE

REACTIONS (5)
  - Pyrexia [None]
  - Abdominal pain [None]
  - Waist circumference decreased [None]
  - Chills [None]
  - Pyrexia [None]

NARRATIVE: CASE EVENT DATE: 20230628
